FAERS Safety Report 20597901 (Version 1)
Quarter: 2022Q1

REPORT INFORMATION
  Report Type: Spontaneous
  Country: US (occurrence: US)
  Receive Date: 20220315
  Receipt Date: 20220315
  Transmission Date: 20220423
  Serious: Yes (Other)
  Sender: FDA-Public Use
  Company Number: US-PFIZER INC-202200392197

PATIENT
  Sex: Male

DRUGS (1)
  1. SPIRONOLACTONE [Suspect]
     Active Substance: SPIRONOLACTONE
     Indication: Diabetes mellitus
     Dosage: UNK

REACTIONS (4)
  - Cardiac failure [Unknown]
  - Depressed mood [Unknown]
  - Irritability [Unknown]
  - Product use in unapproved indication [Unknown]
